FAERS Safety Report 10751027 (Version 1)
Quarter: 2015Q1

REPORT INFORMATION
  Report Type: Spontaneous
  Country: US (occurrence: None)
  Receive Date: 20150129
  Receipt Date: 20150129
  Transmission Date: 20150721
  Serious: Yes (Hospitalization)
  Sender: FDA-Public Use
  Company Number: None

PATIENT
  Age: 65 Year
  Sex: Female

DRUGS (7)
  1. NALTREXONE [Concomitant]
     Active Substance: NALTREXONE
  2. AMPYRA [Suspect]
     Active Substance: DALFAMPRIDINE
     Indication: MULTIPLE SCLEROSIS
     Route: 048
     Dates: start: 201102
  3. SANCTURA [Concomitant]
     Active Substance: TROSPIUM CHLORIDE
  4. AMANTADINE [Concomitant]
     Active Substance: AMANTADINE
  5. ZOFRAN [Concomitant]
     Active Substance: ONDANSETRON HYDROCHLORIDE
  6. LISINOPRIL. [Concomitant]
     Active Substance: LISINOPRIL
  7. PRILOSEC [Concomitant]
     Active Substance: OMEPRAZOLE MAGNESIUM

REACTIONS (5)
  - Abdominal pain [None]
  - Constipation [None]
  - Multiple sclerosis relapse [None]
  - Urinary tract infection [None]
  - Refusal of treatment by patient [None]

NARRATIVE: CASE EVENT DATE: 20130515
